FAERS Safety Report 13992964 (Version 1)
Quarter: 2017Q3

REPORT INFORMATION
  Report Type: Report from Study
  Country: FR (occurrence: FR)
  Receive Date: 20170920
  Receipt Date: 20170920
  Transmission Date: 20171128
  Serious: Yes (Other)
  Sender: FDA-Public Use
  Company Number: PHHY2016FR185093

PATIENT

DRUGS (7)
  1. TRAVATAN [Suspect]
     Active Substance: TRAVOPROST
     Indication: PRODUCT USED FOR UNKNOWN INDICATION
     Route: 065
  2. SIMBRINZA [Suspect]
     Active Substance: BRIMONIDINE TARTRATE\BRINZOLAMIDE
     Indication: PRODUCT USED FOR UNKNOWN INDICATION
     Route: 065
  3. AZARGA [Suspect]
     Active Substance: BRINZOLAMIDE\TIMOLOL MALEATE
     Indication: PRODUCT USED FOR UNKNOWN INDICATION
     Route: 065
  4. TIMOPTOL [Suspect]
     Active Substance: TIMOLOL
     Indication: PRODUCT USED FOR UNKNOWN INDICATION
     Route: 065
  5. COMBIGAN [Suspect]
     Active Substance: BRIMONIDINE TARTRATE\TIMOLOL MALEATE
     Indication: PRODUCT USED FOR UNKNOWN INDICATION
     Route: 065
  6. CARTEOL [Suspect]
     Active Substance: CARTEOLOL
     Indication: PRODUCT USED FOR UNKNOWN INDICATION
     Route: 065
  7. DUALKOPT [Suspect]
     Active Substance: DORZOLAMIDE HYDROCHLORIDE\TIMOLOL MALEATE
     Indication: PRODUCT USED FOR UNKNOWN INDICATION
     Route: 065

REACTIONS (11)
  - Respiratory disorder [Unknown]
  - Ocular hyperaemia [Unknown]
  - Headache [Unknown]
  - Drug intolerance [Unknown]
  - Bradycardia [Unknown]
  - Dyspnoea [Unknown]
  - Fatigue [Unknown]
  - Therapy partial responder [Unknown]
  - Vertigo [Unknown]
  - Angina pectoris [Unknown]
  - Asthma [Unknown]
